FAERS Safety Report 6557912-2 (Version None)
Quarter: 2010Q1

REPORT INFORMATION
  Report Type: 
  Country: None (occurrence: None)
  Receive Date: 20100127
  Receipt Date: 20100127
  Transmission Date: 20100710
  Serious: Yes (Hospitalization)
  Sender: FDA-Public Use
  Company Number: None

PATIENT
  Age: 35 Year
  Sex: Female
  Weight: 77.3 kg

DRUGS (4)
  1. VYVANSE [Suspect]
     Indication: ATTENTION DEFICIT/HYPERACTIVITY DISORDER
     Dosage: 20MG QAM PO RECENT (3 DAYS AGO)
     Route: 048
  2. CELEXA [Concomitant]
  3. JOLESSA [Concomitant]
  4. REMERON [Concomitant]

REACTIONS (4)
  - BLOOD PRESSURE INCREASED [None]
  - HYPOKALAEMIA [None]
  - MANIA [None]
  - TACHYCARDIA [None]
